FAERS Safety Report 12369501 (Version 1)
Quarter: 2016Q2

REPORT INFORMATION
  Report Type: Spontaneous
  Country: US (occurrence: None)
  Receive Date: 20160513
  Receipt Date: 20160513
  Transmission Date: 20160815
  Serious: No
  Sender: FDA-Public Use
  Company Number: None

PATIENT
  Age: 67 Year
  Sex: Male

DRUGS (4)
  1. CAPECITABINE 500MG TAB TEVA [Suspect]
     Active Substance: CAPECITABINE
     Indication: BRAIN NEOPLASM MALIGNANT
     Dosage: 1000MG BID DAYS 10-14 PO
     Route: 048
     Dates: start: 20140410
  2. ONDANSETRON [Concomitant]
     Active Substance: ONDANSETRON
  3. ALLOPURINOL. [Concomitant]
     Active Substance: ALLOPURINOL
  4. TEMOZOLOMIDE 180MG CAP TEVA [Suspect]
     Active Substance: TEMOZOLOMIDE
     Indication: BRAIN NEOPLASM MALIGNANT
     Dosage: 180MG BID DAYS 10-14 PO
     Route: 048
     Dates: start: 20140410

REACTIONS (1)
  - Constipation [None]

NARRATIVE: CASE EVENT DATE: 201604
